FAERS Safety Report 12146012 (Version 1)
Quarter: 2016Q1

REPORT INFORMATION
  Report Type: Spontaneous
  Country: US (occurrence: US)
  Receive Date: 20160304
  Receipt Date: 20160304
  Transmission Date: 20160526
  Serious: No
  Sender: FDA-Public Use
  Company Number: US-PERRIGO-15US004784

PATIENT
  Sex: Female
  Weight: 133.79 kg

DRUGS (2)
  1. NAPROXEN SODIUM 220 MG 368 [Suspect]
     Active Substance: NAPROXEN SODIUM
     Indication: ACCIDENTAL EXPOSURE TO PRODUCT
     Dosage: UNKNOWN, UNKNOWN
     Route: 048
     Dates: start: 2015, end: 20150501
  2. NAPROXEN. [Suspect]
     Active Substance: NAPROXEN
     Indication: ACCIDENTAL EXPOSURE TO PRODUCT
     Dosage: UNKNOWN, UNKNOWN
     Route: 048
     Dates: start: 2015, end: 20150501

REACTIONS (2)
  - No adverse event [Recovered/Resolved]
  - Accidental exposure to product [Recovered/Resolved]

NARRATIVE: CASE EVENT DATE: 2015
